FAERS Safety Report 22155494 (Version 1)
Quarter: 2023Q1

REPORT INFORMATION
  Report Type: Spontaneous
  Country: ES (occurrence: ES)
  Receive Date: 20230330
  Receipt Date: 20230330
  Transmission Date: 20230417
  Serious: Yes (Life-Threatening, Hospitalization, Other)
  Sender: FDA-Public Use
  Company Number: ES-AEMPS-1346115

PATIENT
  Age: 75 Year
  Sex: Female

DRUGS (3)
  1. AMOXICILLIN [Suspect]
     Active Substance: AMOXICILLIN
     Indication: Dental disorder prophylaxis
     Dosage: UNK
     Route: 048
     Dates: start: 20221017, end: 20221017
  2. NAPROXEN SODIUM [Suspect]
     Active Substance: NAPROXEN SODIUM
     Indication: Pain prophylaxis
     Route: 048
     Dates: start: 20221017, end: 20221017
  3. ARTICAINE HYDROCHLORIDE [Concomitant]
     Active Substance: ARTICAINE HYDROCHLORIDE
     Indication: Dental local anaesthesia
     Dosage: UNK
     Route: 058
     Dates: start: 20221017, end: 20221017

REACTIONS (5)
  - Anaphylactic shock [Recovered/Resolved]
  - Hypoxia [Recovered/Resolved]
  - Angioedema [Recovered/Resolved]
  - Depressed level of consciousness [Recovered/Resolved]
  - Rash [Recovered/Resolved]

NARRATIVE: CASE EVENT DATE: 20221017
